FAERS Safety Report 9748692 (Version 2)
Quarter: 2014Q1

REPORT INFORMATION
  Report Type: Spontaneous
  Country: IT (occurrence: IT)
  Receive Date: 20131212
  Receipt Date: 20140128
  Transmission Date: 20141002
  Serious: Yes (Other)
  Sender: FDA-Public Use
  Company Number: IT-ELI_LILLY_AND_COMPANY-IT201312001656

PATIENT
  Age: 42 Year
  Sex: Male
  Weight: 80 kg

DRUGS (2)
  1. ZYPADHERA [Suspect]
     Indication: PSYCHOTIC DISORDER
     Dosage: 405 MG, UNKNOWN
     Route: 030
     Dates: start: 20130617, end: 20131204
  2. CARBOLITHIUM [Concomitant]
     Indication: PSYCHOTIC DISORDER
     Dosage: UNK, UNKNOWN
     Route: 048
     Dates: start: 20121012, end: 20130116

REACTIONS (9)
  - Hypertensive crisis [Recovered/Resolved]
  - Confusional state [Recovered/Resolved]
  - Dysarthria [Recovered/Resolved]
  - Akathisia [Recovered/Resolved]
  - Fatigue [Recovered/Resolved]
  - Speech disorder [Unknown]
  - Agitation [Recovered/Resolved]
  - Sedation [Recovered/Resolved]
  - Weight increased [Recovered/Resolved]
